FAERS Safety Report 5761019-1 (Version None)
Quarter: 2008Q2

REPORT INFORMATION
  Report Type: 
  Country: None (occurrence: None)
  Receive Date: 20080606
  Receipt Date: 20080408
  Transmission Date: 20081010
  Serious: No
  Sender: FDA-Public Use
  Company Number: US-ASTRAZENECA-2006UW09407

PATIENT
  Age: 60 Year
  Sex: Female
  Weight: 69.8 kg

DRUGS (11)
  1. PRILOSEC [Suspect]
     Indication: HIATUS HERNIA
     Route: 048
  2. PRILOSEC [Suspect]
     Indication: GASTROOESOPHAGEAL REFLUX DISEASE
     Route: 048
  3. PRILOSEC [Suspect]
     Route: 048
     Dates: start: 20080201
  4. PRILOSEC [Suspect]
     Route: 048
     Dates: start: 20080201
  5. PRILOSEC [Suspect]
     Dosage: 20 MG
     Route: 048
  6. PRILOSEC [Suspect]
     Dosage: 20 MG
     Route: 048
  7. NEXIUM [Suspect]
     Route: 048
  8. KLONOPIN [Concomitant]
  9. PREVACID [Concomitant]
     Indication: GASTROOESOPHAGEAL REFLUX DISEASE
     Route: 048
  10. PREVACID [Concomitant]
  11. MAALOX [Concomitant]

REACTIONS (7)
  - ABDOMINAL PAIN [None]
  - BACK PAIN [None]
  - CONSTIPATION [None]
  - DRUG INEFFECTIVE [None]
  - DYSGEUSIA [None]
  - FLATULENCE [None]
  - GLOSSODYNIA [None]
